FAERS Safety Report 13803534 (Version 4)
Quarter: 2017Q4

REPORT INFORMATION
  Report Type: Spontaneous
  Country: JP (occurrence: JP)
  Receive Date: 20170728
  Receipt Date: 20171030
  Transmission Date: 20180320
  Serious: Yes (Other)
  Sender: FDA-Public Use
  Company Number: JP-AMGEN-JPNSP2017113672

PATIENT
  Age: 80 Year
  Sex: Male
  Weight: 64 kg

DRUGS (8)
  1. ZYLORIC [Concomitant]
     Active Substance: ALLOPURINOL
     Dosage: 100 MG, QD
     Route: 048
     Dates: start: 20140702
  2. MOHRUS [Concomitant]
     Active Substance: KETOPROFEN
     Dosage: UNK
     Route: 062
  3. PRALIA [Suspect]
     Active Substance: DENOSUMAB
     Indication: OSTEOPOROSIS
     Dosage: 60 MG, Q6MO
     Route: 058
     Dates: start: 20141126, end: 20161207
  4. LASIX [Concomitant]
     Active Substance: FUROSEMIDE
     Dosage: 120 MG, QD
     Route: 048
     Dates: start: 20140702
  5. NEXIUM [Concomitant]
     Active Substance: ESOMEPRAZOLE MAGNESIUM
     Dosage: 20 MG, QD
     Route: 048
     Dates: start: 20140612
  6. PRALIA [Suspect]
     Active Substance: DENOSUMAB
     Indication: RAPIDLY PROGRESSIVE OSTEOARTHRITIS
  7. ISODINE [Concomitant]
     Active Substance: POVIDONE-IODINE
     Dosage: UNK
     Route: 048
  8. BUFFERIN [Concomitant]
     Active Substance: ASPIRIN
     Dosage: 81 MG, QD
     Route: 048
     Dates: start: 20140704

REACTIONS (1)
  - Osteomyelitis [Not Recovered/Not Resolved]

NARRATIVE: CASE EVENT DATE: 20170525
